FAERS Safety Report 6111178-6 (Version None)
Quarter: 2009Q1

REPORT INFORMATION
  Report Type: 
  Country: None (occurrence: None)
  Receive Date: 20090309
  Receipt Date: 20090309
  Transmission Date: 20090719
  Serious: Yes (Other)
  Sender: FDA-Public Use
  Company Number: None

PATIENT
  Age: 23 Month
  Sex: Male
  Weight: 13.6079 kg

DRUGS (1)
  1. SINGULAIR [Suspect]
     Indication: ASTHMA
     Dosage: 1 - 4MG CHEWABLE TABLET 1/DAY PO
     Route: 048
     Dates: start: 20090228, end: 20090305

REACTIONS (6)
  - ABNORMAL BEHAVIOUR [None]
  - AGGRESSION [None]
  - CRYING [None]
  - IRRITABILITY [None]
  - MOOD ALTERED [None]
  - SCREAMING [None]
